FAERS Safety Report 6481130-X (Version None)
Quarter: 2009Q4

REPORT INFORMATION
  Report Type: 
  Country: None (occurrence: None)
  Receive Date: 20091208
  Receipt Date: 20091123
  Transmission Date: 20100525
  Serious: Yes (Death)
  Sender: FDA-Public Use
  Company Number: GB-BAUSCH-2009BL005287

PATIENT
  Age: 13 Year
  Sex: Male
  Weight: 47 kg

DRUGS (11)
  1. DEXAMETHASONE TAB [Suspect]
     Indication: T-CELL LYMPHOMA
     Dates: start: 20090710, end: 20090710
  2. DEXAMETHASONE TAB [Suspect]
     Dates: start: 20090715, end: 20090806
  3. DEXAMETHASONE TAB [Suspect]
     Dates: start: 20090813, end: 20090916
  4. CYCLOPHOSPHAMIDE [Suspect]
     Indication: NON-HODGKIN'S LYMPHOMA
     Dates: start: 20090715, end: 20090719
  5. ERWINASE [Suspect]
     Indication: T-CELL LYMPHOMA
     Dates: start: 20090730, end: 20090809
  6. ETOPOSIDE [Suspect]
     Indication: NON-HODGKIN'S LYMPHOMA
     Dates: start: 20090715, end: 20090719
  7. EVOLTRA [Suspect]
     Indication: NON-HODGKIN'S LYMPHOMA
     Route: 042
     Dates: start: 20090715, end: 20090719
  8. METHOTREXATE [Suspect]
     Indication: T-CELL LYMPHOMA
     Route: 037
     Dates: start: 20090713, end: 20090713
  9. NELARABINE [Suspect]
     Indication: T-CELL LYMPHOMA
     Dates: start: 20090818, end: 20090819
  10. VINCRISTINE [Suspect]
     Indication: T-CELL LYMPHOMA
     Dates: start: 20090710, end: 20090710
  11. VINCRISTINE [Suspect]
     Dates: start: 20090813, end: 20090813

REACTIONS (1)
  - DISEASE PROGRESSION [None]
